FAERS Safety Report 14264705 (Version 5)
Quarter: 2019Q1

REPORT INFORMATION
  Report Type: Spontaneous
  Country: US (occurrence: US)
  Receive Date: 20171208
  Receipt Date: 20190124
  Transmission Date: 20190417
  Serious: Yes (Hospitalization)
  Sender: FDA-Public Use
  Company Number: US-VIFOR (INTERNATIONAL) INC.-VIT-2017-09126

PATIENT
  Age: 69 Year
  Sex: Male
  Weight: 99.88 kg

DRUGS (20)
  1. TESTOSTERONE. [Concomitant]
     Active Substance: TESTOSTERONE
  2. FISH OIL BURP LESS [Concomitant]
  3. ATORVASTATIN CALCIUM. [Concomitant]
     Active Substance: ATORVASTATIN CALCIUM
  4. ALLEGRA ALLERGY [Concomitant]
     Active Substance: FEXOFENADINE HYDROCHLORIDE
  5. COREG CR [Concomitant]
     Active Substance: CARVEDILOL PHOSPHATE
  6. FERROUS SULFATE. [Concomitant]
     Active Substance: FERROUS SULFATE
  7. ASPIRIN. [Concomitant]
     Active Substance: ASPIRIN
  8. HUMULIN N KWIKPEN [Concomitant]
  9. NIFEDIPINE. [Concomitant]
     Active Substance: NIFEDIPINE
  10. TAMSULOSIN HYDROCHLORIDE. [Concomitant]
     Active Substance: TAMSULOSIN HYDROCHLORIDE
  11. ERGOCALCIFEROL. [Concomitant]
     Active Substance: ERGOCALCIFEROL
  12. ALLOPURINOL. [Concomitant]
     Active Substance: ALLOPURINOL
  13. FUROSEMIDE. [Concomitant]
     Active Substance: FUROSEMIDE
  14. FENOFIBRATE. [Concomitant]
     Active Substance: FENOFIBRATE
  15. TUMS [Concomitant]
     Active Substance: CALCIUM CARBONATE
  16. LOSARTAN POTASSIUM. [Concomitant]
     Active Substance: LOSARTAN POTASSIUM
  17. VELTASSA [Suspect]
     Active Substance: PATIROMER
     Indication: HYPERKALAEMIA
     Route: 048
     Dates: start: 20160609, end: 201901
  18. RANEXA [Concomitant]
     Active Substance: RANOLAZINE
  19. METOPROLOL TARTRATE. [Concomitant]
     Active Substance: METOPROLOL TARTRATE
  20. TORSEMIDE. [Concomitant]
     Active Substance: TORSEMIDE

REACTIONS (6)
  - Syncope [Recovering/Resolving]
  - Product dose omission [Unknown]
  - Hypertension [Recovered/Resolved]
  - Toe amputation [Recovering/Resolving]
  - Hypotension [Unknown]
  - Staphylococcal infection [Recovering/Resolving]

NARRATIVE: CASE EVENT DATE: 201804
